FAERS Safety Report 5341969-0 (Version None)
Quarter: 2007Q2

REPORT INFORMATION
  Report Type: 
  Country: None (occurrence: None)
  Receive Date: 20070530
  Receipt Date: 20070530
  Transmission Date: 20071010
  Serious: Yes (Hospitalization)
  Sender: FDA-Public Use
  Company Number: None

PATIENT
  Age: 68 Year
  Sex: Male
  Weight: 82.1011 kg

DRUGS (2)
  1. GEMZAR [Suspect]
     Indication: PANCREATIC CARCINOMA
     Dosage: 1.9 GRAMS QWK X 3 WKS IV
     Route: 042
     Dates: start: 20070424, end: 20070508
  2. LAPATINIB [Suspect]
     Indication: PANCREATIC CARCINOMA
     Dosage: 1500MG DAILY ORALLY
     Route: 048
     Dates: start: 20070424, end: 20070510

REACTIONS (7)
  - ACUTE RESPIRATORY DISTRESS SYNDROME [None]
  - CHOLANGITIS [None]
  - PNEUMOCYSTIS JIROVECI INFECTION [None]
  - PURULENCE [None]
  - RESPIRATORY FAILURE [None]
  - SEPSIS [None]
  - STENT OCCLUSION [None]
